FAERS Safety Report 20111193 (Version 3)
Quarter: 2022Q1

REPORT INFORMATION
  Report Type: Spontaneous
  Country: US (occurrence: US)
  Receive Date: 20211125
  Receipt Date: 20220215
  Transmission Date: 20220423
  Serious: No
  Sender: FDA-Public Use
  Company Number: US-AMGEN-USASP2021182237

PATIENT
  Age: 79 Year
  Sex: Female

DRUGS (2)
  1. REPATHA [Suspect]
     Active Substance: EVOLOCUMAB
     Indication: Product used for unknown indication
     Dosage: 140 MILLIGRAM, UNK
     Route: 065
     Dates: start: 202103
  2. COVID-19 VACCINE [Concomitant]

REACTIONS (5)
  - Fear of injection [Unknown]
  - Incorrect disposal of product [Unknown]
  - Inappropriate schedule of product administration [Unknown]
  - Blood test abnormal [Unknown]
  - Malaise [Unknown]

NARRATIVE: CASE EVENT DATE: 20211114
